FAERS Safety Report 17207915 (Version 1)
Quarter: 2019Q4

REPORT INFORMATION
  Report Type: Spontaneous
  Country: US (occurrence: US)
  Receive Date: 20191227
  Receipt Date: 20191227
  Transmission Date: 20200122
  Serious: No
  Sender: FDA-Public Use
  Company Number: US-MYLANLABS-2019M1123291

PATIENT
  Sex: Female
  Weight: 57 kg

DRUGS (2)
  1. ESTRADIOL TRANSDERMAL SYSTEM [Suspect]
     Active Substance: ESTRADIOL
     Indication: MENOPAUSAL SYMPTOMS
     Dosage: ONE PATCH TWICE A WEEK, BOX WITH NON-COMPLIANT COLOR
     Route: 062
  2. ESTRADIOL TRANSDERMAL SYSTEM [Suspect]
     Active Substance: ESTRADIOL
     Dosage: UNK

REACTIONS (7)
  - Blood oestrogen abnormal [Not Recovered/Not Resolved]
  - Product outer packaging issue [Unknown]
  - Sleep disorder [Not Recovered/Not Resolved]
  - Breast pain [Not Recovered/Not Resolved]
  - Migraine [Not Recovered/Not Resolved]
  - Nausea [Not Recovered/Not Resolved]
  - Blood oestrogen decreased [Unknown]
